FAERS Safety Report 16303257 (Version 2)
Quarter: 2020Q4

REPORT INFORMATION
  Report Type: Spontaneous
  Country: US (occurrence: US)
  Receive Date: 20190513
  Receipt Date: 20201028
  Transmission Date: 20210113
  Serious: Yes (Other)
  Sender: FDA-Public Use
  Company Number: US-ASTRAZENECA-2019SE63773

PATIENT
  Age: 22955 Day
  Sex: Male

DRUGS (46)
  1. PLAVIX [Concomitant]
     Active Substance: CLOPIDOGREL BISULFATE
     Indication: BLOOD PRESSURE MEASUREMENT
     Dates: start: 20121127
  2. CLOPIDOGREL [Concomitant]
     Active Substance: CLOPIDOGREL BISULFATE
     Dates: start: 20121127
  3. DIOVAN [Concomitant]
     Active Substance: VALSARTAN
     Dates: start: 20100806
  4. SPIRIVA [Concomitant]
     Active Substance: TIOTROPIUM BROMIDE MONOHYDRATE
     Dates: start: 20091221
  5. PANTOPRAZOLE [Suspect]
     Active Substance: PANTOPRAZOLE
     Indication: GASTROOESOPHAGEAL REFLUX DISEASE
     Dosage: GENERIC
     Route: 065
     Dates: start: 20181110
  6. OXYCODONE [Concomitant]
     Active Substance: OXYCODONE
     Indication: ANALGESIC THERAPY
     Dates: start: 20190521
  7. HYDROCODONE BITARTRATE AND ACETAMINOPHEN [Concomitant]
     Active Substance: ACETAMINOPHEN\HYDROCODONE BITARTRATE
     Dates: start: 20121011
  8. FOLIC ACID. [Concomitant]
     Active Substance: FOLIC ACID
     Dates: start: 20091130
  9. FLUOCINONIDE. [Concomitant]
     Active Substance: FLUOCINONIDE
     Dates: start: 20161110
  10. ROLAIDS [Concomitant]
     Active Substance: CALCIUM CARBONATE\MAGNESIUM HYDROXIDE
  11. MAALOX ANTACID [Concomitant]
     Active Substance: ALUMINUM HYDROXIDE\DIMETHICONE\MAGNESIUM HYDROXIDE
  12. MILK OF MAGNESIA [Concomitant]
     Active Substance: MAGNESIUM HYDROXIDE
  13. SIMVASTATIN. [Concomitant]
     Active Substance: SIMVASTATIN
     Dates: start: 20121203
  14. PREDNISONE. [Concomitant]
     Active Substance: PREDNISONE
     Dates: start: 20121127
  15. METHYLPREDNISOLONE. [Concomitant]
     Active Substance: METHYLPREDNISOLONE
     Dates: start: 20111007
  16. PRILOSEC OTC [Suspect]
     Active Substance: OMEPRAZOLE MAGNESIUM
     Indication: GASTROOESOPHAGEAL REFLUX DISEASE
     Route: 048
     Dates: start: 2003
  17. VENTOLIN [Concomitant]
     Active Substance: ALBUTEROL SULFATE
     Indication: INHALATION THERAPY
     Dates: start: 20181029
  18. ALLOPURINOL. [Concomitant]
     Active Substance: ALLOPURINOL
     Dates: start: 20180413
  19. ZANTAC [Concomitant]
     Active Substance: RANITIDINE HYDROCHLORIDE
     Dosage: GENERIC RANITIDINE
  20. SUCRALFATE. [Concomitant]
     Active Substance: SUCRALFATE
     Dates: start: 20121122
  21. NITROSTAT [Concomitant]
     Active Substance: NITROGLYCERIN
     Dates: start: 20121127
  22. AZITHROMYCIN ANHYDROUS. [Concomitant]
     Active Substance: AZITHROMYCIN ANHYDROUS
     Dates: start: 20120210
  23. CLOBETASOL [Concomitant]
     Active Substance: CLOBETASOL
     Dates: start: 20190329
  24. PRILOSEC OTC [Suspect]
     Active Substance: OMEPRAZOLE MAGNESIUM
     Indication: GASTROOESOPHAGEAL REFLUX DISEASE
     Route: 048
     Dates: start: 200401, end: 201001
  25. PANTOPRAZOLE [Suspect]
     Active Substance: PANTOPRAZOLE
     Indication: GASTROOESOPHAGEAL REFLUX DISEASE
     Dosage: GENERIC TABLET
     Route: 065
     Dates: start: 20110308
  26. ZANTAC [Concomitant]
     Active Substance: RANITIDINE HYDROCHLORIDE
  27. LORATADINE. [Concomitant]
     Active Substance: LORATADINE
     Dates: start: 20161110
  28. SYMBICORT [Concomitant]
     Active Substance: BUDESONIDE\FORMOTEROL FUMARATE DIHYDRATE
     Indication: INHALATION THERAPY
     Dates: start: 20100510
  29. CHERATUSSIN AC [Concomitant]
     Active Substance: CODEINE PHOSPHATE\GUAIFENESIN
     Dates: start: 20121220
  30. CEPHALEXIN. [Concomitant]
     Active Substance: CEPHALEXIN
     Dates: start: 20100927
  31. DICLOXACILLIN [Concomitant]
     Active Substance: DICLOXACILLIN
     Dates: start: 20101102
  32. COLCHICINE. [Concomitant]
     Active Substance: COLCHICINE
     Dates: start: 20100522
  33. METOPROLOL. [Concomitant]
     Active Substance: METOPROLOL
     Indication: ANALGESIC THERAPY
     Dates: start: 20141003, end: 20190528
  34. PEPTO-BISMOL [Concomitant]
     Active Substance: BISMUTH SUBSALICYLATE
  35. TUMS [Concomitant]
     Active Substance: CALCIUM CARBONATE
  36. SINGULAIR [Concomitant]
     Active Substance: MONTELUKAST SODIUM
     Dates: start: 20100927
  37. NEXIUM 24HR [Suspect]
     Active Substance: ESOMEPRAZOLE MAGNESIUM
     Indication: GASTROOESOPHAGEAL REFLUX DISEASE
     Route: 048
     Dates: start: 201403
  38. WARFARIN [Concomitant]
     Active Substance: WARFARIN
     Indication: ANTICOAGULANT THERAPY
     Dates: start: 20140819, end: 20190329
  39. INCRUSE ELLIPTA [Concomitant]
     Active Substance: UMECLIDINIUM BROMIDE
     Indication: INHALATION THERAPY
  40. FAMOTIDINE. [Concomitant]
     Active Substance: FAMOTIDINE
  41. ENOXAPARIN [Concomitant]
     Active Substance: ENOXAPARIN
     Dates: start: 20121002
  42. BENZONATATE. [Concomitant]
     Active Substance: BENZONATATE
     Dates: start: 20121217
  43. AMOXICILLIN. [Concomitant]
     Active Substance: AMOXICILLIN
     Dates: start: 20101203
  44. ADVAIR DISKUS [Concomitant]
     Active Substance: FLUTICASONE PROPIONATE\SALMETEROL XINAFOATE
     Dates: start: 20080809
  45. SENOKOT [Concomitant]
     Active Substance: SENNOSIDES
     Dates: start: 20161110
  46. DICLOFENAC SODIUM. [Concomitant]
     Active Substance: DICLOFENAC SODIUM
     Dates: start: 20161110

REACTIONS (2)
  - Chronic kidney disease [Not Recovered/Not Resolved]
  - Gout [Unknown]

NARRATIVE: CASE EVENT DATE: 20170224
